FAERS Safety Report 8937136 (Version 5)
Quarter: 2013Q2

REPORT INFORMATION
  Report Type: Spontaneous
  Country: IT (occurrence: None)
  Receive Date: 20121123
  Receipt Date: 20130628
  Transmission Date: 20140414
  Serious: Yes (Life-Threatening, Hospitalization)
  Sender: FDA-Public Use
  Company Number: 2012-1389

PATIENT
  Age: 73 Year
  Sex: Female
  Weight: 60 kg

DRUGS (24)
  1. CARFILZOMIB [Suspect]
     Indication: PLASMA CELL MYELOMA
     Dosage: 8.5714 MG (30 MG, DAYS 1, 2)
     Route: 042
     Dates: start: 20120703, end: 20120704
  2. DEXAMETHASONE (DEXAMETHASONE) (DEXAMETHASONE) [Concomitant]
  3. DIBASE (COLECALCIFEROL) (COLECALCIFEROL) [Concomitant]
  4. OSSEOR (STRONTIUM RANELATE) (STRONTIUM RANELATE) [Concomitant]
  5. LIMPIDEX (LANSOPRAZOLE) (LANSOPRAZOLE) [Concomitant]
  6. BACTRIM (SULFAMETHOXAZOLE) (SULFAMETHOXAZOLE) [Concomitant]
  7. ENAPREN (ENALAPRIL MALEATE) (ENALAPRIL MALEATE) [Concomitant]
  8. GAVISCON (SODIUM BICARBONATE) (SODIUM BICARBONATE) [Concomitant]
  9. PANCREX (PANCREATIN) (PANCREATIN) [Concomitant]
  10. ACICLOVIR (ACICLOVIR) ( ACICLOVIR) [Concomitant]
  11. ARANESP (DARBEPOETIN ALFA) (DARBEPOETIN ALFA) [Concomitant]
  12. GRANULOKINE (FILGRASTIM) (FILGRASTIM) [Concomitant]
  13. CLEXANE (ENOXAPARIN SODIUM) (ENOXAPARIN SODIUM0 [Concomitant]
  14. LASIX (FUROSEMIDE) (FUROSEMIDE) [Concomitant]
  15. PIPERACILLINA/TAZOBACTAM (PIPERACILLIN SODIUM) (PIPERACILLIN SODIUM) [Concomitant]
  16. TAVANIC (LEVOFLOXACIN) (LEVOFLOXACIN) [Concomitant]
  17. DEPONIT (GLYCERYL TRINITRATE) (GLYCERYL TRINITRATE) [Concomitant]
  18. DILATREND (CARVEDILOL) (CARVEDILOL) [Concomitant]
  19. AUGMENTIN (AMOXICILLIN SODIUM) (AMOXICILLIN SODIUM) [Concomitant]
  20. LANSOPRAZOLE (LANSOPRAZOLE) (LANSOPRAZOLE) [Concomitant]
  21. COUMADIN (WARFARIN SODIUM) (WARFARIN SODIUM) [Concomitant]
  22. LUCEN (ESOMEPRAZOLE MAGNESIUM) (ESOMEPRAZOLE MAGNESIUM) [Concomitant]
  23. ROCEFINE(CEFTRIAXONE SODIUM)(CEFTRIAZONE DOSIUM) [Concomitant]
  24. LEVOXACIN(LEVOFLOXACIN(LEVOFLOXACIN) [Concomitant]

REACTIONS (4)
  - Hepatic cancer [None]
  - Peritoneal haemorrhage [None]
  - Post procedural haemorrhage [None]
  - Oedema [None]
